FAERS Safety Report 24671325 (Version 1)
Quarter: 2024Q4

REPORT INFORMATION
  Report Type: Spontaneous
  Country: US (occurrence: US)
  Receive Date: 20241127
  Receipt Date: 20241127
  Transmission Date: 20250115
  Serious: No
  Sender: AKEBIA THERAPEUTICS
  Company Number: US-KERYX BIOPHARMACEUTICALS INC.-US-AKEB-24-001030

PATIENT
  Age: 50 Year
  Sex: Male

DRUGS (1)
  1. AURYXIA [Suspect]
     Active Substance: TETRAFERRIC TRICITRATE DECAHYDRATE
     Indication: Hyperphosphataemia
     Dosage: 2 DOSAGE FORM, TID
     Route: 048
     Dates: end: 202404

REACTIONS (1)
  - Blood iron increased [Recovering/Resolving]

NARRATIVE: CASE EVENT DATE: 20240401
